FAERS Safety Report 9778253 (Version 1)
Quarter: 2013Q4

REPORT INFORMATION
  Report Type: Spontaneous
  Country: US (occurrence: US)
  Receive Date: 20131223
  Receipt Date: 20131223
  Transmission Date: 20140711
  Serious: Yes (Disabling, Other)
  Sender: FDA-Public Use
  Company Number: US-ELI_LILLY_AND_COMPANY-US201312004773

PATIENT
  Sex: Female

DRUGS (2)
  1. HUMALOG LISPRO [Suspect]
     Indication: TYPE 2 DIABETES MELLITUS
     Dosage: 6 U, TID
     Route: 065
  2. LEVEMIR [Concomitant]
     Dosage: 14 U, EACH EVENING

REACTIONS (5)
  - Blindness unilateral [Unknown]
  - Visual acuity reduced [Unknown]
  - Hearing impaired [Unknown]
  - Injection site haemorrhage [Unknown]
  - Injection site pain [Unknown]
